FAERS Safety Report 22231843 (Version 1)
Quarter: 2023Q2

REPORT INFORMATION
  Report Type: Spontaneous
  Country: US (occurrence: None)
  Receive Date: 20230420
  Receipt Date: 20230420
  Transmission Date: 20230721
  Serious: No
  Sender: FDA-Public Use
  Company Number: US-ROCHE-3185967

PATIENT
  Sex: Male

DRUGS (12)
  1. ESBRIET [Suspect]
     Active Substance: PIRFENIDONE
     Indication: Pulmonary fibrosis
     Dosage: TAKING 1 TABLET BY MOUTH THREE TIMES A DAY AT THE SAME TIMES EACH DAY
     Route: 048
     Dates: start: 20210524
  2. ATORVASTATIN [Concomitant]
     Active Substance: ATORVASTATIN
  3. CYPROHEPTADINE [Concomitant]
     Active Substance: CYPROHEPTADINE
  4. DALIRESP [Concomitant]
     Active Substance: ROFLUMILAST
     Dosage: 500 MCG
  5. FAMOTIDINE [Concomitant]
     Active Substance: FAMOTIDINE
  6. FISH OIL [Concomitant]
     Active Substance: FISH OIL
  7. OMEPRAZOLE [Concomitant]
     Active Substance: OMEPRAZOLE
  8. OXYCODONE HYDROCHLORIDE [Concomitant]
     Active Substance: OXYCODONE HYDROCHLORIDE
  9. PREDNISONE [Concomitant]
     Active Substance: PREDNISONE
  10. SENTRY SENIOR [Concomitant]
  11. VITAMIN C [Concomitant]
     Active Substance: ASCORBIC ACID
  12. VITAMIN D3 [Concomitant]
     Active Substance: CHOLECALCIFEROL
     Dosage: 125 MCG(50)

REACTIONS (1)
  - Dyspnoea [Not Recovered/Not Resolved]
